FAERS Safety Report 8007100-8 (Version None)
Quarter: 2011Q4

REPORT INFORMATION
  Report Type: 
  Country: None (occurrence: None)
  Receive Date: 20111227
  Receipt Date: 20111215
  Transmission Date: 20120403
  Serious: Yes (Other)
  Sender: FDA-Public Use
  Company Number: GB-UCBSA-047670

PATIENT
  Age: 31 Year
  Sex: Female
  Weight: 108.86 kg

DRUGS (6)
  1. OLANZAPINE [Concomitant]
  2. TOPIRAMATE [Concomitant]
  3. VALPROATE SODIUM [Concomitant]
  4. LACOSAMIDE [Suspect]
     Route: 048
     Dates: start: 20110101, end: 20110101
  5. LACOSAMIDE [Suspect]
     Indication: CONVULSION
     Dosage: 50 MG IN THE MORNING AND 100 MG AT NIGHT
     Route: 048
     Dates: start: 20110101, end: 20111129
  6. LACOSAMIDE [Suspect]
     Dosage: DAILY DOSE OF 50 MG
     Route: 048
     Dates: start: 20111010, end: 20110101

REACTIONS (7)
  - GAIT DISTURBANCE [None]
  - HYPOAESTHESIA [None]
  - CONFUSIONAL STATE [None]
  - DYSPRAXIA [None]
  - DISORIENTATION [None]
  - RESPIRATORY RATE INCREASED [None]
  - DRUG INEFFECTIVE [None]
